FAERS Safety Report 8154498-6 (Version None)
Quarter: 2012Q1

REPORT INFORMATION
  Report Type: 
  Country: None (occurrence: None)
  Receive Date: 20120215
  Receipt Date: 20111019
  Transmission Date: 20120608
  Serious: Yes (Other)
  Sender: FDA-Public Use
  Company Number: AEUSA201100291

PATIENT
  Age: 63 Year
  Sex: Male
  Weight: 80 kg

DRUGS (5)
  1. FACTOR VIIA [Suspect]
     Indication: CEREBRAL HAEMORRHAGE
     Dosage: 1 MG; TOTAL; IV
     Route: 042
     Dates: start: 20110130, end: 20110130
  2. FACTOR VIIA [Suspect]
     Indication: INTERNATIONAL NORMALISED RATIO INCREASED
     Dosage: 1 MG; TOTAL; IV
     Route: 042
     Dates: start: 20110130, end: 20110130
  3. PROFILNINE SD [Suspect]
     Indication: INTERNATIONAL NORMALISED RATIO INCREASED
     Dosage: 2060 IU; TOTAL; IV
     Route: 042
     Dates: start: 20110130, end: 20110130
  4. PROFILNINE SD [Suspect]
     Indication: CEREBRAL HAEMORRHAGE
     Dosage: 2060 IU; TOTAL; IV
     Route: 042
     Dates: start: 20110130, end: 20110130
  5. WARFARIN SODIUM [Concomitant]

REACTIONS (1)
  - PULMONARY EMBOLISM [None]
